FAERS Safety Report 5352476-3 (Version None)
Quarter: 2007Q2

REPORT INFORMATION
  Report Type: 
  Country: None (occurrence: None)
  Receive Date: 20070611
  Receipt Date: 20070605
  Transmission Date: 20071010
  Serious: Yes (Hospitalization)
  Sender: FDA-Public Use
  Company Number: B0472134A

PATIENT
  Age: 81 Year
  Sex: Female
  Weight: 70 kg

DRUGS (12)
  1. ROSIGLITAZONE [Suspect]
     Dosage: 4MG PER DAY
     Route: 048
     Dates: start: 20010807
  2. GLUCOPHAGE [Concomitant]
     Dosage: 2.55G PER DAY
     Route: 048
     Dates: start: 19991101
  3. LIPITOR [Concomitant]
  4. AMLOR [Concomitant]
  5. MOLSIDOMINE [Concomitant]
  6. OMEPRAZOLE [Concomitant]
  7. BEFACT FORTE [Concomitant]
  8. COZAAR [Concomitant]
  9. PULMICORT [Concomitant]
  10. LOORTAN [Concomitant]
  11. MEDROL [Concomitant]
  12. PANTOPRAZOLE SODIUM [Concomitant]

REACTIONS (3)
  - DYSPNOEA [None]
  - HIP FRACTURE [None]
  - PNEUMONIA [None]
